FAERS Safety Report 6583782-2 (Version None)
Quarter: 2010Q1

REPORT INFORMATION
  Report Type: 
  Country: None (occurrence: None)
  Receive Date: 20100213
  Receipt Date: 20100213
  Transmission Date: 20100710
  Serious: Yes (Life-Threatening, Hospitalization)
  Sender: FDA-Public Use
  Company Number: None

PATIENT
  Age: 43 Year
  Sex: Female
  Weight: 106.5953 kg

DRUGS (1)
  1. MICROGESTIN 1.5/30 [Suspect]
     Indication: CONTRACEPTION
     Dosage: 1 TABLET  ONCE DAILY PO
     Route: 048
     Dates: start: 20091003, end: 20100126

REACTIONS (2)
  - PULMONARY EMBOLISM [None]
  - THROMBOPHLEBITIS [None]
